FAERS Safety Report 6055302-2 (Version None)
Quarter: 2009Q1

REPORT INFORMATION
  Report Type: 
  Country: None (occurrence: None)
  Receive Date: 20090128
  Receipt Date: 20090128
  Transmission Date: 20090719
  Serious: Yes (Other)
  Sender: FDA-Public Use
  Company Number: US-PFIZER INC-2008101347

PATIENT
  Sex: Male

DRUGS (1)
  1. XALATAN [Suspect]

REACTIONS (2)
  - CATARACT [None]
  - VISION BLURRED [None]
